FAERS Safety Report 6932243-7 (Version None)
Quarter: 2010Q3

REPORT INFORMATION
  Report Type: 
  Country: None (occurrence: None)
  Receive Date: 20100819
  Receipt Date: 20100809
  Transmission Date: 20110219
  Serious: Yes (Hospitalization, Other)
  Sender: FDA-Public Use
  Company Number: US-ROCHE-702758

PATIENT
  Sex: Female
  Weight: 58.1 kg

DRUGS (7)
  1. ACCUTANE [Suspect]
     Route: 065
     Dates: start: 19981215
  2. ACCUTANE [Suspect]
     Dosage: ALTERNATING DOSES
     Route: 065
     Dates: start: 19990208
  3. ACCUTANE [Suspect]
     Dosage: STOPPED FOR A WEEK
     Route: 065
     Dates: start: 19990329, end: 19990510
  4. ACCUTANE [Suspect]
     Route: 065
     Dates: start: 19990517
  5. ACCUTANE [Suspect]
     Route: 065
  6. ACCUTANE [Suspect]
     Route: 065
     Dates: end: 19991215
  7. ACCUTANE [Suspect]
     Route: 065
     Dates: start: 20000101

REACTIONS (10)
  - ANGIOEDEMA [None]
  - CROHN'S DISEASE [None]
  - DEPRESSION [None]
  - DERMATITIS CONTACT [None]
  - DRY SKIN [None]
  - DYSHIDROSIS [None]
  - INFLAMMATORY BOWEL DISEASE [None]
  - IRRITABLE BOWEL SYNDROME [None]
  - LIP DRY [None]
  - SUICIDAL IDEATION [None]
